FAERS Safety Report 11193841 (Version 3)
Quarter: 2015Q3

REPORT INFORMATION
  Report Type: Spontaneous
  Country: US (occurrence: US)
  Receive Date: 20150616
  Receipt Date: 20150811
  Transmission Date: 20151125
  Serious: Yes (Congenital Anomaly, Other)
  Sender: FDA-Public Use
  Company Number: US-APOTEX-2015AP008316

PATIENT

DRUGS (1)
  1. PAXIL [Suspect]
     Active Substance: PAROXETINE HYDROCHLORIDE
     Indication: PRODUCT USED FOR UNKNOWN INDICATION
     Route: 064

REACTIONS (10)
  - Speech disorder [Unknown]
  - Neonatal respiratory distress syndrome [Recovered/Resolved]
  - Attention deficit/hyperactivity disorder [Unknown]
  - Aneurysm [Unknown]
  - Cardiac murmur [Unknown]
  - Shoulder dystocia [Unknown]
  - Umbilical cord around neck [Unknown]
  - Ventricular septal defect [Not Recovered/Not Resolved]
  - Atrial septal defect [Recovered/Resolved]
  - Foetal exposure during pregnancy [Unknown]
